FAERS Safety Report 23755091 (Version 2)
Quarter: 2024Q2

REPORT INFORMATION
  Report Type: Other
  Country: CA (occurrence: CA)
  Receive Date: 20240418
  Receipt Date: 20240527
  Transmission Date: 20240716
  Serious: Yes (Disabling, Other)
  Sender: FDA-Public Use
  Company Number: CA-APOTEX-2024AP004560

PATIENT

DRUGS (1)
  1. PAROXETINE [Suspect]
     Active Substance: PAROXETINE
     Indication: Gastrointestinal disorder
     Dosage: UNK
     Route: 065

REACTIONS (8)
  - Enzyme abnormality [Unknown]
  - Muscle injury [Unknown]
  - Nerve injury [Unknown]
  - Product prescribing issue [Unknown]
  - Product use in unapproved indication [Unknown]
  - Tinnitus [Unknown]
  - Seizure [Unknown]
  - Serotonin syndrome [Unknown]
